FAERS Safety Report 6949794-1 (Version None)
Quarter: 2010Q3

REPORT INFORMATION
  Report Type: 
  Country: None (occurrence: None)
  Receive Date: 20100828
  Receipt Date: 20100113
  Transmission Date: 20110219
  Serious: No
  Sender: FDA-Public Use
  Company Number: US-ABBOTT-10P-163-0619776-00

PATIENT
  Sex: Female
  Weight: 94.432 kg

DRUGS (9)
  1. NIASPAN [Suspect]
     Indication: BLOOD TRIGLYCERIDES INCREASED
     Dates: start: 20090601, end: 20090901
  2. NIASPAN [Suspect]
     Indication: HIGH DENSITY LIPOPROTEIN DECREASED
  3. SCOPOHIST [Suspect]
     Indication: PRURITUS
     Dates: start: 20090601, end: 20090901
  4. BIETTA [Concomitant]
     Indication: DIABETES MELLITUS
  5. CRESTOR [Concomitant]
     Indication: BLOOD CHOLESTEROL INCREASED
  6. DIOVAN [Concomitant]
     Indication: HYPERTENSION
  7. NEURONTIN [Concomitant]
     Indication: NEUROPATHY PERIPHERAL
  8. ATARAX [Concomitant]
     Indication: HYPERSENSITIVITY
  9. SINGULAIR [Concomitant]
     Indication: HYPERSENSITIVITY

REACTIONS (3)
  - DRY MOUTH [None]
  - PRURITUS GENERALISED [None]
  - RASH GENERALISED [None]
